FAERS Safety Report 14937598 (Version 9)
Quarter: 2019Q1

REPORT INFORMATION
  Report Type: Report from Study
  Country: CA (occurrence: CA)
  Receive Date: 20180525
  Receipt Date: 20190313
  Transmission Date: 20190417
  Serious: Yes (Hospitalization, Other)
  Sender: FDA-Public Use
  Company Number: PHHY2017CA090052

PATIENT
  Age: 75 Year
  Sex: Female

DRUGS (8)
  1. ONDANSETRON. [Suspect]
     Active Substance: ONDANSETRON
     Indication: PROPHYLAXIS AGAINST DIARRHOEA
     Dosage: 8 MG, PRN
     Route: 048
     Dates: start: 20170511
  2. ONDANSETRON. [Suspect]
     Active Substance: ONDANSETRON
     Indication: PROPHYLAXIS OF NAUSEA AND VOMITING
  3. AFINITOR [Suspect]
     Active Substance: EVEROLIMUS
     Indication: PRODUCT USED FOR UNKNOWN INDICATION
     Dosage: UNK
     Route: 065
  4. AFINITOR [Suspect]
     Active Substance: EVEROLIMUS
     Dosage: 5 MG, QD
     Route: 048
  5. SANDOSTATIN LAR DEPOT [Suspect]
     Active Substance: OCTREOTIDE ACETATE
     Indication: CARCINOID TUMOUR
     Dosage: 30 MG, QMO (EVERY 4 WEEKS)
     Route: 030
     Dates: start: 20170511
  6. SANDOSTATIN LAR DEPOT [Suspect]
     Active Substance: OCTREOTIDE ACETATE
     Dosage: 60 MG, QMO
     Route: 030
  7. SANDOSTATIN LAR DEPOT [Suspect]
     Active Substance: OCTREOTIDE ACETATE
     Dosage: 30 MG, QMO (EVERY 4 WEEKS)
     Route: 030
  8. MORPHINE [Suspect]
     Active Substance: MORPHINE
     Indication: PRODUCT USED FOR UNKNOWN INDICATION
     Route: 065

REACTIONS (31)
  - Metastases to liver [Unknown]
  - Malignant neoplasm progression [Unknown]
  - Dysstasia [Unknown]
  - Osteoarthritis [Unknown]
  - Intestinal obstruction [Unknown]
  - Abdominal pain [Unknown]
  - Back pain [Unknown]
  - Nausea [Unknown]
  - Second primary malignancy [Unknown]
  - Joint injury [Unknown]
  - Incorrect dose administered [Unknown]
  - Nervousness [Unknown]
  - Feeling abnormal [Unknown]
  - Pain [Unknown]
  - Flatulence [Unknown]
  - Diarrhoea [Unknown]
  - Influenza like illness [Unknown]
  - Oedema [Unknown]
  - Pancreatic neuroendocrine tumour metastatic [Unknown]
  - Gait disturbance [Not Recovered/Not Resolved]
  - Malaise [Not Recovered/Not Resolved]
  - Emphysema [Unknown]
  - Hypertension [Unknown]
  - Dizziness [Unknown]
  - Headache [Unknown]
  - Breast cancer stage II [Unknown]
  - Blood pressure systolic increased [Unknown]
  - 5-hydroxyindolacetic acid in urine [Unknown]
  - Asthenia [Unknown]
  - Injection site pain [Not Recovered/Not Resolved]
  - Vomiting [Unknown]

NARRATIVE: CASE EVENT DATE: 20170614
